FAERS Safety Report 6146738-X (Version None)
Quarter: 2009Q2

REPORT INFORMATION
  Report Type: 
  Country: None (occurrence: None)
  Receive Date: 20090407
  Receipt Date: 20090401
  Transmission Date: 20091009
  Serious: Yes (Hospitalization)
  Sender: FDA-Public Use
  Company Number: US-JNJFOC-20090401338

PATIENT
  Age: 21 Year
  Sex: Female

DRUGS (2)
  1. EXTRA STRENGTH TYLENOL [Suspect]
     Route: 048
  2. EXTRA STRENGTH TYLENOL [Suspect]
     Indication: MIGRAINE
     Dosage: ^LARGE AMOUNTS^
     Route: 048

REACTIONS (2)
  - HEPATIC FAILURE [None]
  - OVERDOSE [None]
